FAERS Safety Report 8110980-9 (Version None)
Quarter: 2012Q1

REPORT INFORMATION
  Report Type: 
  Country: None (occurrence: None)
  Receive Date: 20120203
  Receipt Date: 20110124
  Transmission Date: 20120608
  Serious: No
  Sender: FDA-Public Use
  Company Number: US-GLAXOSMITHKLINE-A0908617A

PATIENT
  Age: 51 Year
  Sex: Female
  Weight: 115.9 kg

DRUGS (4)
  1. ZESTRIL [Concomitant]
  2. PAXIL [Concomitant]
  3. TRAZODONE HCL [Concomitant]
  4. LAMOTRIGINE [Suspect]
     Indication: PRODUCT USED FOR UNKNOWN INDICATION
     Dosage: 300MG UNKNOWN
     Route: 048
     Dates: start: 20080101

REACTIONS (1)
  - DRUG SCREEN POSITIVE [None]
